FAERS Safety Report 6181145-5 (Version None)
Quarter: 2009Q2

REPORT INFORMATION
  Report Type: 
  Country: None (occurrence: None)
  Receive Date: 20090506
  Receipt Date: 20090427
  Transmission Date: 20091009
  Serious: Yes (Other)
  Sender: FDA-Public Use
  Company Number: PHEH2009US04143

PATIENT
  Age: 53 Year
  Sex: Male

DRUGS (9)
  1. RECLAST [Suspect]
     Indication: OSTEOPOROSIS
     Dosage: UNK
  2. LEXAPRO [Suspect]
     Indication: DEPRESSION
     Dosage: 10 MG, QD
     Route: 048
     Dates: start: 20070101
  3. LEXAPRO [Suspect]
     Indication: ANXIETY
     Dosage: 20 MG, QD
     Route: 048
  4. LEXAPRO [Suspect]
     Dosage: 10 MG QD X 7 DAYS
     Route: 048
     Dates: start: 20090301
  5. LEXAPRO [Suspect]
     Dosage: 10 MG EVERY OTHER DAY X 7 DAYS
     Route: 048
     Dates: end: 20090301
  6. LEXAPRO [Suspect]
     Dosage: 10 MG, QOD
     Route: 048
     Dates: start: 20090403, end: 20090410
  7. WELLBUTRIN [Concomitant]
     Dosage: UNK
  8. XANAX [Concomitant]
     Dosage: UNK
  9. CALCIUM [Concomitant]
     Dosage: UNK

REACTIONS (6)
  - CONFUSIONAL STATE [None]
  - DISTURBANCE IN ATTENTION [None]
  - DIZZINESS [None]
  - NAUSEA [None]
  - PARAESTHESIA [None]
  - TINNITUS [None]
